FAERS Safety Report 18754199 (Version 2)
Quarter: 2021Q1

REPORT INFORMATION
  Report Type: Spontaneous
  Country: JP (occurrence: JP)
  Receive Date: 20210119
  Receipt Date: 20210121
  Transmission Date: 20210419
  Serious: Yes (Other)
  Sender: FDA-Public Use
  Company Number: JP-TEVA-2021-JP-1869609

PATIENT
  Age: 64 Year
  Sex: Female

DRUGS (5)
  1. 5?FLUOROURACIL [Suspect]
     Active Substance: FLUOROURACIL
     Indication: RECTOSIGMOID CANCER STAGE II
     Dosage: MFOLFOX6 REGIMEN, 400MG/M2, BOLUS ON DAY 1
  2. LEUCOVORIN. [Suspect]
     Active Substance: LEUCOVORIN
     Indication: RECTOSIGMOID CANCER STAGE II
     Dosage: MFOLFOX6 REGIMEN, 200MG/M2 ON DAY 1
     Route: 065
  3. 5?FLUOROURACIL [Suspect]
     Active Substance: FLUOROURACIL
     Dosage: 2400MG/M2 INFUSION OVER 46?HOURS
     Route: 042
  4. PANITUMUMAB [Suspect]
     Active Substance: PANITUMUMAB
     Indication: RECTOSIGMOID CANCER STAGE II
     Dosage: 6MG/KG ON DAY 1
     Route: 065
  5. OXALIPLATIN. [Suspect]
     Active Substance: OXALIPLATIN
     Indication: RECTOSIGMOID CANCER STAGE II
     Dosage: MFOLFOX6 REGIMEN, 85 MG/M2 ON DAY 1
     Route: 065

REACTIONS (3)
  - Neutropenia [Unknown]
  - Dysgeusia [Unknown]
  - Hepatic function abnormal [Unknown]
